FAERS Safety Report 13652411 (Version 1)
Quarter: 2017Q2

REPORT INFORMATION
  Report Type: Spontaneous
  Country: US (occurrence: US)
  Receive Date: 20170614
  Receipt Date: 20170614
  Transmission Date: 20170830
  Serious: No
  Sender: FDA-Public Use
  Company Number: US-PFIZER INC-2017256481

PATIENT
  Age: 43 Year
  Sex: Female

DRUGS (1)
  1. HYDROCORTISONE. [Suspect]
     Active Substance: HYDROCORTISONE
     Indication: PAIN
     Dosage: UNK (6 HYDROCORTISONE INJECTIONS)

REACTIONS (1)
  - Drug ineffective [Unknown]
